FAERS Safety Report 13382380 (Version 4)
Quarter: 2017Q2

REPORT INFORMATION
  Report Type: Spontaneous
  Country: US (occurrence: US)
  Receive Date: 20170329
  Receipt Date: 20170411
  Transmission Date: 20170830
  Serious: Yes (Hospitalization, Other)
  Sender: FDA-Public Use
  Company Number: US-GLAXOSMITHKLINE-US2017GSK044126

PATIENT
  Age: 63 Year
  Sex: Female

DRUGS (7)
  1. FLOLAN [Suspect]
     Active Substance: EPOPROSTENOL SODIUM
     Indication: PULMONARY ARTERIAL HYPERTENSION
  2. FLOLAN [Suspect]
     Active Substance: EPOPROSTENOL SODIUM
     Indication: PULMONARY HYPERTENSION
     Dosage: UNK, U
  3. FLOLAN [Suspect]
     Active Substance: EPOPROSTENOL SODIUM
     Indication: PULMONARY ARTERIAL HYPERTENSION
  4. WARFARIN [Concomitant]
     Active Substance: WARFARIN
  5. LETAIRIS [Concomitant]
     Active Substance: AMBRISENTAN
  6. FLOLAN [Suspect]
     Active Substance: EPOPROSTENOL SODIUM
     Indication: PULMONARY HYPERTENSION
     Dosage: 24 NG/KG/MIN, CO
     Route: 042
     Dates: start: 20120911
  7. SILDENAFIL CITRATE. [Concomitant]
     Active Substance: SILDENAFIL CITRATE

REACTIONS (6)
  - Oxygen saturation decreased [Unknown]
  - Diarrhoea [Unknown]
  - Atrial flutter [Unknown]
  - Dyspnoea [Unknown]
  - Condition aggravated [Unknown]
  - Cardiac failure [Unknown]

NARRATIVE: CASE EVENT DATE: 201703
